FAERS Safety Report 13693560 (Version 1)
Quarter: 2017Q2

REPORT INFORMATION
  Report Type: Report from Study
  Country: CA (occurrence: CA)
  Receive Date: 20170627
  Receipt Date: 20170627
  Transmission Date: 20170830
  Serious: Yes (Hospitalization)
  Sender: FDA-Public Use
  Company Number: CA-BRISTOL-MYERS SQUIBB COMPANY-BMS-2017-050711

PATIENT
  Age: 72 Year
  Sex: Female

DRUGS (1)
  1. ABATACEPT [Suspect]
     Active Substance: ABATACEPT
     Indication: RHEUMATOID ARTHRITIS
     Dosage: 750 MG, QMO
     Route: 065
     Dates: start: 20111020

REACTIONS (8)
  - Fall [Recovering/Resolving]
  - Head injury [Recovered/Resolved]
  - Limb injury [Unknown]
  - Muscle spasms [Unknown]
  - Upper limb fracture [Unknown]
  - Viral upper respiratory tract infection [Unknown]
  - Pain [Unknown]
  - Splint application [Unknown]

NARRATIVE: CASE EVENT DATE: 20170605
